FAERS Safety Report 4395172-1 (Version None)
Quarter: 2004Q3

REPORT INFORMATION
  Report Type: 
  Country: None (occurrence: None)
  Receive Date: 20040706
  Receipt Date: 20040625
  Transmission Date: 20050211
  Serious: Yes (Other)
  Sender: FDA-Public Use
  Company Number: 2004-06-1907

PATIENT
  Age: 61 Year
  Sex: Male

DRUGS (1)
  1. CELESTONE SOLUSPAN [Suspect]
     Indication: TENDONITIS
     Dosage: 2 MG
     Dates: start: 20040517, end: 20040517

REACTIONS (5)
  - CHEST DISCOMFORT [None]
  - DYSPNOEA [None]
  - ERYTHEMA [None]
  - MALAISE [None]
  - PULSE PRESSURE DECREASED [None]
